FAERS Safety Report 9747597 (Version 1)
Quarter: 2013Q4

REPORT INFORMATION
  Report Type: Spontaneous
  Country: US (occurrence: None)
  Receive Date: 20131211
  Receipt Date: 20131211
  Transmission Date: 20140711
  Serious: Yes (Life-Threatening)
  Sender: FDA-Public Use
  Company Number: None

PATIENT
  Age: 65 Year
  Sex: Male
  Weight: 89.36 kg

DRUGS (1)
  1. GABAPENTIN [Suspect]
     Indication: SPINAL COLUMN STENOSIS
     Dates: start: 20131001, end: 20131113

REACTIONS (9)
  - Disorientation [None]
  - Memory impairment [None]
  - Pain in extremity [None]
  - Nausea [None]
  - Confusional state [None]
  - Visual impairment [None]
  - Vision blurred [None]
  - Neuralgia [None]
  - Condition aggravated [None]
